APPROVED DRUG PRODUCT: OMEGA-3-ACID ETHYL ESTERS
Active Ingredient: OMEGA-3-ACID ETHYL ESTERS
Strength: 1GM CONTAINS AT LEAST 900MG OF THE ETHYL ESTERS OF OMEGA-3 FATTY ACIDS
Dosage Form/Route: CAPSULE;ORAL
Application: A091018 | Product #001
Applicant: ONESOURCE SPECIALTY PTE LTD
Approved: Jun 24, 2014 | RLD: No | RS: No | Type: DISCN